FAERS Safety Report 9665091 (Version 2)
Quarter: 2013Q4

REPORT INFORMATION
  Report Type: Report from Study
  Country: JP (occurrence: JP)
  Receive Date: 20131101
  Receipt Date: 20131217
  Transmission Date: 20140711
  Serious: Yes (Death)
  Sender: FDA-Public Use
  Company Number: JP-TAKEDA-2013TJP002354

PATIENT
  Age: 79 Year
  Sex: Male
  Weight: 45 kg

DRUGS (7)
  1. LANSOPRAZOLE [Suspect]
     Indication: PROPHYLAXIS AGAINST GASTROINTESTINAL ULCER
     Dosage: 15 MG, QD
     Route: 048
     Dates: start: 20120924, end: 20121002
  2. BAYASPIRIN [Concomitant]
     Indication: THROMBOSIS PROPHYLAXIS
     Dosage: 100 MG, 1 DAYS
     Route: 048
     Dates: start: 20120924
  3. HERBESSER R [Concomitant]
     Indication: ANGINA PECTORIS
     Dosage: 200 MG, 1 DAYS
     Route: 048
     Dates: start: 20120924
  4. ADALAT CR [Concomitant]
     Indication: ANGINA PECTORIS
     Dosage: 20 MG, 1 DAYS
     Route: 048
     Dates: start: 20120924
  5. THEODUR [Concomitant]
     Dosage: 100 MG, 1DAYS
     Route: 048
     Dates: start: 20120924
  6. SEREVENT [Concomitant]
     Indication: CHRONIC OBSTRUCTIVE PULMONARY DISEASE
     Dosage: 2 PUFF, 1DAYS
     Route: 055
     Dates: start: 20120926
  7. FLUTIDE [Concomitant]
     Indication: CHRONIC OBSTRUCTIVE PULMONARY DISEASE
     Dosage: 2 PUFF, 1DAYS
     Route: 055
     Dates: start: 20120926

REACTIONS (1)
  - Aortic dissection [Fatal]
